FAERS Safety Report 22933486 (Version 4)
Quarter: 2023Q4

REPORT INFORMATION
  Report Type: Report from Study
  Country: US (occurrence: US)
  Receive Date: 20230912
  Receipt Date: 20231012
  Transmission Date: 20240110
  Serious: Yes (Hospitalization, Other)
  Sender: FDA-Public Use
  Company Number: US-002147023-NVSC2023US195248

PATIENT
  Sex: Female

DRUGS (1)
  1. ILARIS [Suspect]
     Active Substance: CANAKINUMAB
     Indication: Still^s disease
     Dosage: 150 MG/KG, QMO
     Route: 058
     Dates: start: 20230821

REACTIONS (14)
  - Haemophagocytic lymphohistiocytosis [Recovering/Resolving]
  - Ocular hyperaemia [Unknown]
  - Eye swelling [Unknown]
  - Muscle tightness [Unknown]
  - Pyrexia [Unknown]
  - Rash [Unknown]
  - Nasal congestion [Unknown]
  - Diarrhoea [Unknown]
  - Arthralgia [Unknown]
  - Lymphadenopathy [Unknown]
  - Productive cough [Unknown]
  - Cough [Unknown]
  - Fatigue [Unknown]
  - Dizziness [Unknown]
